FAERS Safety Report 6618403-3 (Version None)
Quarter: 2010Q1

REPORT INFORMATION
  Report Type: 
  Country: None (occurrence: None)
  Receive Date: 20100308
  Receipt Date: 20100226
  Transmission Date: 20100710
  Serious: Yes (Hospitalization)
  Sender: FDA-Public Use
  Company Number: B0634850A

PATIENT
  Sex: Female

DRUGS (6)
  1. KEPPRA [Suspect]
     Indication: DEPRESSION
     Dosage: 250MG PER DAY
     Route: 048
     Dates: start: 20100129, end: 20100201
  2. DEROXAT [Suspect]
     Indication: DEPRESSION
     Dosage: 20MG TWICE PER DAY
     Route: 048
     Dates: start: 20100128, end: 20100201
  3. LEVOTHYROX [Concomitant]
     Route: 048
  4. ATARAX [Concomitant]
     Route: 065
  5. RIVOTRIL [Concomitant]
     Route: 065
  6. IDEOS [Concomitant]
     Route: 048

REACTIONS (2)
  - AGITATION [None]
  - DELIRIUM [None]
